FAERS Safety Report 6537392-3 (Version None)
Quarter: 2010Q1

REPORT INFORMATION
  Report Type: 
  Country: None (occurrence: None)
  Receive Date: 20100114
  Receipt Date: 20100105
  Transmission Date: 20100710
  Serious: Yes (Other)
  Sender: FDA-Public Use
  Company Number: US-CELGENEUS-163-20785-10010170

PATIENT

DRUGS (3)
  1. THALOMID [Suspect]
     Indication: PROSTATE CANCER
     Route: 048
  2. DOCETAXEL [Suspect]
     Indication: PROSTATE CANCER
     Route: 065
  3. LOW MOLECULAR WEIGHT HEPARIN [Concomitant]
     Indication: DRUG USE FOR UNKNOWN INDICATION
     Route: 065

REACTIONS (22)
  - ANAEMIA [None]
  - ARRHYTHMIA [None]
  - ASTHENIA [None]
  - CHEST PAIN [None]
  - CONSTIPATION [None]
  - CONVULSION [None]
  - DIARRHOEA [None]
  - DIZZINESS [None]
  - DYSPNOEA [None]
  - ELECTROLYTE IMBALANCE [None]
  - FATIGUE [None]
  - HAEMORRHAGE [None]
  - HALLUCINATION [None]
  - HEPATIC FUNCTION ABNORMAL [None]
  - HYPERSENSITIVITY [None]
  - ILEUS [None]
  - INFECTION [None]
  - ISCHAEMIA [None]
  - MYALGIA [None]
  - NEUTROPENIA [None]
  - SYNCOPE [None]
  - THROMBOCYTOPENIA [None]
